FAERS Safety Report 4571152-8 (Version None)
Quarter: 2005Q1

REPORT INFORMATION
  Report Type: 
  Country: None (occurrence: None)
  Receive Date: 20050202
  Receipt Date: 20050124
  Transmission Date: 20050727
  Serious: Yes (Hospitalization)
  Sender: FDA-Public Use
  Company Number: 2005018617

PATIENT
  Age: 68 Year
  Sex: Male

DRUGS (8)
  1. FLUCONAZOLE [Suspect]
     Indication: ILL-DEFINED DISORDER
     Dosage: 200 MG (1 IN 1 D), INTRAVENOUS
     Route: 042
     Dates: start: 20041116, end: 20041129
  2. TEICOPLANIN (TEICOPLANIN) [Suspect]
     Indication: ILL-DEFINED DISORDER
     Dosage: 200 MG, INTRAVENOUS
     Route: 042
     Dates: start: 20041126, end: 20041128
  3. HEPARIN SODIUM [Suspect]
     Indication: ILL-DEFINED DISORDER
     Dosage: 70 MG (70 MG, 1 IN 1 D), INTRAVENOUS
     Route: 042
     Dates: start: 20041116, end: 20041128
  4. ACYCLOVIR [Suspect]
     Indication: ILL-DEFINED DISORDER
     Dosage: 500 MG (500 MG, 1 IN 1 D), INTRAVENOUS
     Route: 042
     Dates: start: 20041116, end: 20041126
  5. VANCOMYCIN [Suspect]
     Indication: ILL-DEFINED DISORDER
     Dosage: 500 MG (1 IN 1 D), INTRAVENOUS
     Route: 042
     Dates: start: 20041116, end: 20041125
  6. CASPOFUNGIN ACETATE [Concomitant]
  7. CIPROFLOXACIN [Concomitant]
  8. CEFTAZIDIME PENTAHYDRATE [Concomitant]

REACTIONS (8)
  - CONJUNCTIVAL HAEMORRHAGE [None]
  - ERYTHEMA [None]
  - EYELID OEDEMA [None]
  - HYPERSENSITIVITY [None]
  - HYPERTHERMIA [None]
  - RASH GENERALISED [None]
  - RENAL FAILURE [None]
  - THROMBOCYTOPENIA [None]
